FAERS Safety Report 18260945 (Version 2)
Quarter: 2020Q3

REPORT INFORMATION
  Report Type: Other
  Country: FR (occurrence: FR)
  Receive Date: 20200914
  Receipt Date: 20200929
  Transmission Date: 20201103
  Serious: Yes (Death, Hospitalization)
  Sender: FDA-Public Use
  Company Number: FR-CADILA HEALTHCARE LIMITED-FR-ZYDUS-044519

PATIENT

DRUGS (19)
  1. MOLSIDOMINE [Suspect]
     Active Substance: MOLSIDOMINE
  2. ROPINIROLE. [Suspect]
     Active Substance: ROPINIROLE
     Indication: PRODUCT USED FOR UNKNOWN INDICATION
     Dosage: 20 MILLIGRAM
     Route: 048
  3. ZOPICLONE [Suspect]
     Active Substance: ZOPICLONE
     Dosage: 1 PATCH/JOUR
     Route: 023
  4. LANTUS [Suspect]
     Active Substance: INSULIN GLARGINE
     Indication: TYPE 2 DIABETES MELLITUS
     Dosage: ()
     Route: 058
  5. FUROSEMIDE. [Suspect]
     Active Substance: FUROSEMIDE
  6. LANTUS [Suspect]
     Active Substance: INSULIN GLARGINE
     Route: 058
  7. SKENAN [Suspect]
     Active Substance: MORPHINE SULFATE
     Dosage: 80 MILLIGRAM,(INTERVAL :1 DAYS)
     Route: 048
  8. LOXEN L P [Suspect]
     Active Substance: NICARDIPINE HYDROCHLORIDE
     Indication: HYPERTENSION
     Dosage: 100 MILLIGRAM
     Route: 048
  9. RAMIPRIL. [Suspect]
     Active Substance: RAMIPRIL
     Route: 048
  10. PARACETAMOL [Suspect]
     Active Substance: ACETAMINOPHEN
     Route: 048
  11. CEFTRIAXONE. [Suspect]
     Active Substance: CEFTRIAXONE
     Indication: PRODUCT USED FOR UNKNOWN INDICATION
     Route: 065
  12. DIAFUSOR [Suspect]
     Active Substance: NITROGLYCERIN
     Indication: PRODUCT USED FOR UNKNOWN INDICATION
     Route: 065
  13. OMEPRAZOLE. [Suspect]
     Active Substance: OMEPRAZOLE
     Route: 048
  14. LORMETAZEPAM [Suspect]
     Active Substance: LORMETAZEPAM
     Dosage: 2.5 MILLIGRAM,(INTERVAL :1 DAYS)
     Route: 048
  15. ACIDE FOLIQUE [Suspect]
     Active Substance: FOLIC ACID
  16. METFORMINE [Suspect]
     Active Substance: METFORMIN HYDROCHLORIDE
  17. DICLOFENAC [Suspect]
     Active Substance: DICLOFENAC
  18. ACTISKENAN [Suspect]
     Active Substance: MORPHINE SULFATE
     Indication: PRODUCT USED FOR UNKNOWN INDICATION
     Route: 048
  19. BETAXOLOL. [Suspect]
     Active Substance: BETAXOLOL
     Indication: PRODUCT USED FOR UNKNOWN INDICATION
     Route: 065

REACTIONS (1)
  - Acquired haemophilia [Fatal]

NARRATIVE: CASE EVENT DATE: 20191010
